FAERS Safety Report 6888462-1 (Version None)
Quarter: 2010Q3

REPORT INFORMATION
  Report Type: 
  Country: None (occurrence: None)
  Receive Date: 20100730
  Receipt Date: 20100720
  Transmission Date: 20110219
  Serious: Yes (Other)
  Sender: FDA-Public Use
  Company Number: AU-WYE-G06431410

PATIENT
  Sex: Male

DRUGS (1)
  1. EFFEXOR XR [Suspect]
     Indication: DEPRESSION
     Dosage: UNKNOWN, THEN INCREASED TO 150MG DAILY, THEN 225MG AND ABOVE, THEN 300MG DAILY, THEN WITHDRAWING

REACTIONS (7)
  - BRUXISM [None]
  - COMPULSIVE SEXUAL BEHAVIOUR [None]
  - MUSCLE TIGHTNESS [None]
  - NAUSEA [None]
  - NONSPECIFIC REACTION [None]
  - PATHOLOGICAL GAMBLING [None]
  - SEDATION [None]
